FAERS Safety Report 11432378 (Version 1)
Quarter: 2015Q3

REPORT INFORMATION
  Report Type: Spontaneous
  Country: AT (occurrence: AT)
  Receive Date: 20150828
  Receipt Date: 20150828
  Transmission Date: 20151125
  Serious: Yes (Other)
  Sender: FDA-Public Use
  Company Number: AT-MYLANLABS-2015M1028962

PATIENT

DRUGS (3)
  1. ERLOTINIB [Suspect]
     Active Substance: ERLOTINIB
     Indication: NON-SMALL CELL LUNG CANCER
     Dosage: 150 MG/DAY
     Route: 065
  2. GEFITINIB [Suspect]
     Active Substance: GEFITINIB
     Indication: NON-SMALL CELL LUNG CANCER
     Dosage: 250 MG/DAY
     Route: 065
  3. AFATINIB [Suspect]
     Active Substance: AFATINIB
     Indication: NON-SMALL CELL LUNG CANCER
     Dosage: 50 MG/DAY
     Route: 065

REACTIONS (3)
  - Drug resistance [Unknown]
  - Diarrhoea [Unknown]
  - Rash [Unknown]
